FAERS Safety Report 8520061-8 (Version None)
Quarter: 2012Q3

REPORT INFORMATION
  Report Type: 
  Country: None (occurrence: None)
  Receive Date: 20120719
  Receipt Date: 20120716
  Transmission Date: 20120928
  Serious: Yes (Hospitalization)
  Sender: FDA-Public Use
  Company Number: US-AMGEN-USASP2012034847

PATIENT
  Age: 50 Year
  Sex: Female

DRUGS (1)
  1. ENBREL [Suspect]
     Indication: RHEUMATOID ARTHRITIS
     Dosage: 50 MG, QWK
     Dates: start: 20001020

REACTIONS (9)
  - ELBOW DEFORMITY [None]
  - MOBILITY DECREASED [None]
  - RHEUMATOID ARTHRITIS [None]
  - DECREASED APPETITE [None]
  - OSTEOARTHRITIS [None]
  - WEIGHT DECREASED [None]
  - INJECTION SITE PAIN [None]
  - BRONCHITIS CHRONIC [None]
  - LUNG INFECTION [None]
